FAERS Safety Report 9520636 (Version 2)
Quarter: 2013Q3

REPORT INFORMATION
  Report Type: Report from Study
  Country: US (occurrence: US)
  Receive Date: 20130913
  Receipt Date: 20130913
  Transmission Date: 20140515
  Serious: Yes (Other)
  Sender: FDA-Public Use
  Company Number: US-ROCHE-1221658

PATIENT
  Age: 59 Year
  Sex: Male
  Weight: 92.71 kg

DRUGS (3)
  1. AVASTIN [Suspect]
     Indication: GLIOBLASTOMA
     Route: 042
     Dates: start: 20120801
  2. AVASTIN [Suspect]
     Route: 042
     Dates: start: 20120901, end: 20130606
  3. AVASTIN [Suspect]
     Route: 042
     Dates: start: 20121020, end: 20130812

REACTIONS (12)
  - Vision blurred [Recovered/Resolved]
  - Hypertension [Recovered/Resolved]
  - Back pain [Recovering/Resolving]
  - Lacrimation decreased [Recovering/Resolving]
  - Diplopia [Recovering/Resolving]
  - Blood pressure increased [Recovering/Resolving]
  - Protein urine [Recovering/Resolving]
  - Fatigue [Recovering/Resolving]
  - Feeling abnormal [Recovering/Resolving]
  - Epistaxis [Recovering/Resolving]
  - Dry skin [Recovering/Resolving]
  - Dry eye [Recovering/Resolving]
